FAERS Safety Report 5662727-3 (Version None)
Quarter: 2008Q1

REPORT INFORMATION
  Report Type: 
  Country: None (occurrence: None)
  Receive Date: 20080313
  Receipt Date: 20080305
  Transmission Date: 20080703
  Serious: Yes (Death, Other)
  Sender: FDA-Public Use
  Company Number: US-AVENTIS-200618261US

PATIENT
  Sex: Female
  Weight: 63.5 kg

DRUGS (20)
  1. LOVENOX [Suspect]
     Route: 058
     Dates: start: 20040818, end: 20040818
  2. INTEGRILIN [Suspect]
     Route: 042
     Dates: start: 20040818, end: 20040818
  3. INTEGRILIN [Suspect]
     Route: 042
     Dates: start: 20040818, end: 20040818
  4. TENECTEPLASE [Suspect]
     Route: 042
     Dates: start: 20040818, end: 20040818
  5. ASPIRIN [Suspect]
     Dates: start: 20040818, end: 20040818
  6. PLAVIX [Suspect]
     Indication: MYOCARDIAL INFARCTION
     Route: 048
     Dates: start: 20040818, end: 20040818
  7. HEPARIN [Suspect]
     Dosage: DOSE: UNK
     Dates: start: 20040818
  8. LOPRESSOR [Concomitant]
     Dosage: DOSE: UNK
  9. LIPITOR [Concomitant]
     Dosage: DOSE: UNK
  10. CAPTOPRIL [Concomitant]
     Dosage: DOSE: UNK
  11. PAXIL [Concomitant]
     Dosage: DOSE: UNK
  12. PROTONIX [Concomitant]
     Dosage: DOSE: UNK
  13. NITROGLYCERIN [Concomitant]
     Dosage: DOSE: UNK
  14. TYLENOL (CAPLET) [Concomitant]
     Dosage: DOSE: UNK
  15. AMBIEN [Concomitant]
     Dosage: DOSE: UNK
  16. COLACE [Concomitant]
     Dosage: DOSE: UNK
  17. DARVOCET-N 100 [Concomitant]
     Dosage: DOSE: UNK
  18. SODIUM CHLORIDE [Concomitant]
     Dosage: DOSE: UNK
     Dates: start: 20040818
  19. VERSED [Concomitant]
     Dosage: DOSE: UNK
     Dates: start: 20040818
  20. FENTANYL [Concomitant]
     Dosage: DOSE: UNK
     Dates: start: 20040818

REACTIONS (20)
  - AGITATION [None]
  - BRAIN HERNIATION [None]
  - BRONCHITIS [None]
  - HAEMATOMA [None]
  - HAEMORRHAGE [None]
  - HAEMORRHAGE INTRACRANIAL [None]
  - HYPERGLYCAEMIA [None]
  - MENINGITIS VIRAL [None]
  - NERVOUS SYSTEM DISORDER [None]
  - NEUROLOGICAL EXAMINATION ABNORMAL [None]
  - PNEUMONIA [None]
  - PULMONARY OEDEMA [None]
  - PYREXIA [None]
  - SPINAL EPIDURAL HAEMORRHAGE [None]
  - SPUTUM CULTURE POSITIVE [None]
  - STAPHYLOCOCCAL BACTERAEMIA [None]
  - SUBARACHNOID HAEMORRHAGE [None]
  - SUBDURAL HAEMORRHAGE [None]
  - TACHYCARDIA [None]
  - TACHYPNOEA [None]
